FAERS Safety Report 15715048 (Version 1)
Quarter: 2018Q4

REPORT INFORMATION
  Report Type: Report from Study
  Country: US (occurrence: US)
  Receive Date: 20181212
  Receipt Date: 20181212
  Transmission Date: 20190205
  Serious: Yes (Hospitalization)
  Sender: FDA-Public Use
  Company Number: US-ADAMAS PHARMA, LLC-2018ADA02914

PATIENT
  Age: 71 Year
  Sex: Male

DRUGS (6)
  1. UNSPECIFIED LEVODOPA-BASED THERAPY [Concomitant]
  2. GOCOVRI [Suspect]
     Active Substance: AMANTADINE
     Indication: DYSKINESIA
     Dosage: 274 MG, 1X/DAY AT NIGHT
     Route: 048
     Dates: start: 20180929
  3. ROPINIROLE. [Concomitant]
     Active Substance: ROPINIROLE
  4. AMANTADINE. [Concomitant]
     Active Substance: AMANTADINE HYDROCHLORIDE
  5. NUPLAZID [Concomitant]
     Active Substance: PIMAVANSERIN TARTRATE
  6. ASPIRIN. [Concomitant]
     Active Substance: ASPIRIN

REACTIONS (1)
  - Blister [Unknown]

NARRATIVE: CASE EVENT DATE: 20181127
